FAERS Safety Report 5156646-9 (Version None)
Quarter: 2006Q4

REPORT INFORMATION
  Report Type: 
  Country: None (occurrence: None)
  Receive Date: 20061115
  Receipt Date: 20061102
  Transmission Date: 20070319
  Serious: Yes (Other)
  Sender: FDA-Public Use
  Company Number: 2006135210

PATIENT
  Age: 17 Year
  Sex: Male

DRUGS (1)
  1. GEODON [Suspect]
     Dosage: 2 IN  1 D

REACTIONS (2)
  - DRUG DOSE OMISSION [None]
  - HOMICIDE [None]
